FAERS Safety Report 5398996-7 (Version None)
Quarter: 2007Q3

REPORT INFORMATION
  Report Type: 
  Country: None (occurrence: None)
  Receive Date: 20070727
  Receipt Date: 20070724
  Transmission Date: 20080115
  Serious: Yes (Hospitalization)
  Sender: FDA-Public Use
  Company Number: DE-BRACCO-BRO-011914

PATIENT
  Sex: Female

DRUGS (4)
  1. MULTIHANCE [Suspect]
     Route: 042
     Dates: start: 20070717, end: 20070717
  2. CONCOR                             /00802603/ [Concomitant]
     Route: 048
  3. ESIDRIX [Concomitant]
     Route: 048
  4. MARCUMAR [Concomitant]
     Route: 048

REACTIONS (3)
  - ANAPHYLACTIC SHOCK [None]
  - ASPIRATION [None]
  - GRAND MAL CONVULSION [None]
